FAERS Safety Report 15291496 (Version 5)
Quarter: 2019Q1

REPORT INFORMATION
  Report Type: Spontaneous
  Country: US (occurrence: US)
  Receive Date: 20180817
  Receipt Date: 20190312
  Transmission Date: 20190417
  Serious: No
  Sender: FDA-Public Use
  Company Number: US-PFIZER INC-2018333052

PATIENT
  Age: 69 Year
  Sex: Male
  Weight: 83.91 kg

DRUGS (3)
  1. RAPAMUNE [Suspect]
     Active Substance: SIROLIMUS
     Indication: HEART TRANSPLANT
     Dosage: 1 MG, 1X/DAY
     Route: 048
     Dates: start: 2018
  2. MAGNESIUM SULFATE. [Concomitant]
     Active Substance: MAGNESIUM SULFATE
  3. GENGRAF [Concomitant]
     Active Substance: CYCLOSPORINE
     Indication: HEART TRANSPLANT
     Dosage: IN THE AM 100 AND A 25 CAPSULE EACH AT NIGHT ONE

REACTIONS (4)
  - Product use in unapproved indication [Unknown]
  - Headache [Not Recovered/Not Resolved]
  - Therapeutic response unexpected [Unknown]
  - Pre-existing condition improved [Unknown]

NARRATIVE: CASE EVENT DATE: 2018
